FAERS Safety Report 5366430-9 (Version None)
Quarter: 2007Q2

REPORT INFORMATION
  Report Type: 
  Country: None (occurrence: None)
  Receive Date: 20070622
  Receipt Date: 20070615
  Transmission Date: 20071010
  Serious: Yes (Hospitalization)
  Sender: FDA-Public Use
  Company Number: PHEH2007US06197

PATIENT
  Age: 66 Year
  Sex: Female

DRUGS (1)
  1. ZELNORM [Suspect]
     Indication: CONSTIPATION
     Dosage: 6 MG, BID INTERMITTENTLY
     Route: 048
     Dates: start: 20050509, end: 20070101

REACTIONS (3)
  - CARDIAC FIBRILLATION [None]
  - CARDIAC PACEMAKER INSERTION [None]
  - SICK SINUS SYNDROME [None]
